FAERS Safety Report 15254086 (Version 4)
Quarter: 2018Q3

REPORT INFORMATION
  Report Type: Spontaneous
  Country: NL (occurrence: NL)
  Receive Date: 20180808
  Receipt Date: 20180906
  Transmission Date: 20181010
  Serious: Yes (Other)
  Sender: FDA-Public Use
  Company Number: NL-TEVA-2018-NL-938423

PATIENT
  Age: 50 Year
  Sex: Male

DRUGS (2)
  1. FLUOXETINE [Suspect]
     Active Substance: FLUOXETINE HYDROCHLORIDE
     Indication: PANIC ATTACK
     Route: 065
  2. BETAMETHASONE DIPROPIONATE. [Interacting]
     Active Substance: BETAMETHASONE DIPROPIONATE
     Indication: DERMATITIS ATOPIC
     Dosage: 1?2 TIMES DAILY; MEAN AMOUNT OF 150G/WEEK
     Route: 061

REACTIONS (4)
  - Hypothalamic pituitary adrenal axis suppression [Recovered/Resolved]
  - Adrenal insufficiency [Recovered/Resolved]
  - Withdrawal syndrome [Recovered/Resolved]
  - Drug interaction [Unknown]
